FAERS Safety Report 10213260 (Version 1)
Quarter: 2014Q2

REPORT INFORMATION
  Report Type: Spontaneous
  Country: US (occurrence: None)
  Receive Date: 20140530
  Receipt Date: 20140530
  Transmission Date: 20141212
  Serious: Yes (Life-Threatening)
  Sender: FDA-Public Use
  Company Number: None

PATIENT
  Age: 65 Year
  Sex: Male
  Weight: 136.8 kg

DRUGS (1)
  1. PHYTONADIONE [Suspect]
     Dates: start: 20140119

REACTIONS (1)
  - Anaphylactic shock [None]
